FAERS Safety Report 12445072 (Version 1)
Quarter: 2016Q2

REPORT INFORMATION
  Report Type: Spontaneous
  Country: GB (occurrence: GB)
  Receive Date: 20160607
  Receipt Date: 20160607
  Transmission Date: 20160815
  Serious: Yes (Other)
  Sender: FDA-Public Use
  Company Number: GB-TEVA-664640ACC

PATIENT
  Age: 48 Year
  Sex: Female
  Weight: 86.1 kg

DRUGS (6)
  1. LANSOPRAZOLE. [Concomitant]
     Active Substance: LANSOPRAZOLE
  2. CLENIL MODULITE [Concomitant]
     Active Substance: BECLOMETHASONE DIPROPIONATE
  3. EZETIMIBE. [Concomitant]
     Active Substance: EZETIMIBE
  4. NASACORT [Concomitant]
     Active Substance: TRIAMCINOLONE ACETONIDE
  5. VENLAFAXINE [Suspect]
     Active Substance: VENLAFAXINE HYDROCHLORIDE
     Indication: DEPRESSION
     Dosage: 37.5 MILLIGRAM DAILY;
     Route: 048
     Dates: start: 20160106, end: 20160112
  6. RAMIPRIL. [Concomitant]
     Active Substance: RAMIPRIL

REACTIONS (8)
  - Pulse abnormal [Unknown]
  - Pallor [Unknown]
  - Malaise [Recovering/Resolving]
  - Dizziness [Recovering/Resolving]
  - Consciousness fluctuating [Unknown]
  - Hypersomnia [Unknown]
  - Hyperhidrosis [Unknown]
  - Nausea [Recovering/Resolving]

NARRATIVE: CASE EVENT DATE: 20160106
